FAERS Safety Report 5737121-7 (Version None)
Quarter: 2008Q2

REPORT INFORMATION
  Report Type: 
  Country: None (occurrence: None)
  Receive Date: 20080513
  Receipt Date: 20080513
  Transmission Date: 20081010
  Serious: Yes (Hospitalization)
  Sender: FDA-Public Use
  Company Number: None

PATIENT
  Age: 38 Year
  Sex: Female
  Weight: 46 kg

DRUGS (3)
  1. DIFLUCAN [Suspect]
     Indication: OESOPHAGEAL CANDIDIASIS
     Dosage: 200MG DAILY PO
     Route: 048
     Dates: start: 20071229, end: 20080107
  2. DIFLUCAN [Suspect]
     Indication: STAPHYLOCOCCAL ABSCESS
     Dosage: 200MG DAILY PO
     Route: 048
     Dates: start: 20071229, end: 20080107
  3. ZYVOX [Suspect]
     Indication: PERIANAL ABSCESS
     Dosage: 600MG Q12HR PO
     Route: 048
     Dates: start: 20080102, end: 20080107

REACTIONS (6)
  - CARDIAC FAILURE CONGESTIVE [None]
  - CONVULSION [None]
  - LOSS OF CONSCIOUSNESS [None]
  - RESPIRATORY DISTRESS [None]
  - TORSADE DE POINTES [None]
  - VENTRICULAR TACHYCARDIA [None]
